FAERS Safety Report 13447624 (Version 1)
Quarter: 2017Q2

REPORT INFORMATION
  Report Type: Spontaneous
  Country: US (occurrence: US)
  Receive Date: 20170414
  Receipt Date: 20170414
  Transmission Date: 20170830
  Serious: Yes (Hospitalization)
  Sender: FDA-Public Use
  Company Number: None

PATIENT
  Age: 86 Year
  Sex: Male

DRUGS (2)
  1. COUMADIN [Concomitant]
     Active Substance: WARFARIN SODIUM
  2. EPOGEN [Suspect]
     Active Substance: ERYTHROPOIETIN
     Route: 048
     Dates: start: 20140909

REACTIONS (1)
  - Cellulitis [None]

NARRATIVE: CASE EVENT DATE: 20170323
